FAERS Safety Report 10331669 (Version 1)
Quarter: 2014Q3

REPORT INFORMATION
  Report Type: Spontaneous
  Country: TW (occurrence: TW)
  Receive Date: 20140722
  Receipt Date: 20140722
  Transmission Date: 20150326
  Serious: Yes (Other)
  Sender: FDA-Public Use
  Company Number: PHHY2014TW086219

PATIENT
  Age: 34 Year
  Sex: Male

DRUGS (2)
  1. DEFEROXAMINE [Suspect]
     Active Substance: DEFEROXAMINE\DEFEROXAMINE MESYLATE
     Indication: THALASSAEMIA BETA
     Dosage: 30 MG/KG, PER DAY
     Route: 058
  2. DEFEROXAMINE [Suspect]
     Active Substance: DEFEROXAMINE\DEFEROXAMINE MESYLATE
     Indication: SERUM FERRITIN INCREASED
     Dosage: 98 MG/KG, UNK
     Route: 042

REACTIONS (7)
  - Colour blindness [Recovering/Resolving]
  - Night blindness [Unknown]
  - Visual acuity tests abnormal [Recovering/Resolving]
  - Retinal pigmentation [Unknown]
  - Toxicity to various agents [Unknown]
  - Retinopathy [Unknown]
  - Visual acuity reduced [Unknown]
